FAERS Safety Report 6181971-2 (Version None)
Quarter: 2009Q2

REPORT INFORMATION
  Report Type: 
  Country: None (occurrence: None)
  Receive Date: 20090505
  Receipt Date: 20090421
  Transmission Date: 20091009
  Serious: Yes (Hospitalization)
  Sender: FDA-Public Use
  Company Number: 230261K08USA

PATIENT
  Age: 45 Year
  Sex: Female
  Weight: 68 kg

DRUGS (9)
  1. REBIF [Suspect]
     Indication: MULTIPLE SCLEROSIS
     Dosage: 44 MCG, 3 IN 1 WEEKS, SUBCUTANEOUS
     Route: 058
     Dates: start: 20040405
  2. KEPPRA [Concomitant]
  3. SEROQUEL [Concomitant]
  4. OXYBUTYNIN (OXYBUTYNIN /00538901/) [Concomitant]
  5. PREVACID [Concomitant]
  6. ULTRAM [Concomitant]
  7. VALIUM [Concomitant]
  8. ASPIRIN [Concomitant]
  9. BACLOFEN PUMP (BACLOFEN) [Concomitant]

REACTIONS (4)
  - COLONIC ATONY [None]
  - SEPSIS [None]
  - SMALL INTESTINAL PERFORATION [None]
  - VOLVULUS [None]
